FAERS Safety Report 9763421 (Version 1)
Quarter: 2013Q4

REPORT INFORMATION
  Report Type: Spontaneous
  Country: US (occurrence: US)
  Receive Date: 20131216
  Receipt Date: 20131216
  Transmission Date: 20140711
  Serious: No
  Sender: FDA-Public Use
  Company Number: US-BIOGENIDEC-2013BI109757

PATIENT
  Age: 56 Year
  Sex: Female

DRUGS (7)
  1. TECFIDERA [Suspect]
     Indication: MULTIPLE SCLEROSIS
     Route: 048
     Dates: start: 20131024
  2. SYNTHROID [Concomitant]
  3. FOLIC ACID [Concomitant]
  4. BACLOFEN [Concomitant]
  5. AMANTADINE [Concomitant]
  6. VESICARE [Concomitant]
  7. CVS VITAMIN D [Concomitant]

REACTIONS (1)
  - Headache [Unknown]
